FAERS Safety Report 6083931-9 (Version None)
Quarter: 2009Q1

REPORT INFORMATION
  Report Type: 
  Country: None (occurrence: None)
  Receive Date: 20090217
  Receipt Date: 20090217
  Transmission Date: 20090719
  Serious: Yes (Other)
  Sender: FDA-Public Use
  Company Number: None

PATIENT
  Age: 9 Year
  Sex: Male
  Weight: 41.0052 kg

DRUGS (8)
  1. LEVOTHYROXINE SODIUM [Suspect]
     Indication: BASEDOW'S DISEASE
     Dosage: 75 MCG PO 100 MCG PO 125 MCG PO 150 MCG PO
     Route: 048
     Dates: start: 20071029, end: 20080125
  2. LEVOTHYROXINE SODIUM [Suspect]
     Indication: HYPOTHYROIDISM
     Dosage: 75 MCG PO 100 MCG PO 125 MCG PO 150 MCG PO
     Route: 048
     Dates: start: 20071029, end: 20080125
  3. LEVOTHYROXINE SODIUM [Suspect]
     Indication: BASEDOW'S DISEASE
     Dosage: 75 MCG PO 100 MCG PO 125 MCG PO 150 MCG PO
     Route: 048
     Dates: start: 20080125, end: 20080623
  4. LEVOTHYROXINE SODIUM [Suspect]
     Indication: HYPOTHYROIDISM
     Dosage: 75 MCG PO 100 MCG PO 125 MCG PO 150 MCG PO
     Route: 048
     Dates: start: 20080125, end: 20080623
  5. LEVOTHYROXINE SODIUM [Suspect]
     Indication: BASEDOW'S DISEASE
     Dosage: 75 MCG PO 100 MCG PO 125 MCG PO 150 MCG PO
     Route: 048
     Dates: start: 20080623, end: 20081106
  6. LEVOTHYROXINE SODIUM [Suspect]
     Indication: HYPOTHYROIDISM
     Dosage: 75 MCG PO 100 MCG PO 125 MCG PO 150 MCG PO
     Route: 048
     Dates: start: 20080623, end: 20081106
  7. LEVOTHYROXINE SODIUM [Suspect]
     Indication: BASEDOW'S DISEASE
     Dosage: 75 MCG PO 100 MCG PO 125 MCG PO 150 MCG PO
     Route: 048
     Dates: start: 20081106, end: 20090114
  8. LEVOTHYROXINE SODIUM [Suspect]
     Indication: HYPOTHYROIDISM
     Dosage: 75 MCG PO 100 MCG PO 125 MCG PO 150 MCG PO
     Route: 048
     Dates: start: 20081106, end: 20090114

REACTIONS (1)
  - BLOOD THYROID STIMULATING HORMONE INCREASED [None]
